FAERS Safety Report 9392054 (Version 1)
Quarter: 2013Q3

REPORT INFORMATION
  Report Type: Spontaneous
  Country: GB (occurrence: None)
  Receive Date: 20130705
  Receipt Date: 20130705
  Transmission Date: 20140515
  Serious: Yes (Other)
  Sender: FDA-Public Use
  Company Number: ENTC2013-0231

PATIENT
  Age: 52 Year
  Sex: Female

DRUGS (3)
  1. STALEVO [Suspect]
     Indication: PARKINSON^S DISEASE
     Dosage: 75/18.25/200 MG
     Route: 048
     Dates: start: 2009
  2. MIRAPEXIN [Suspect]
     Indication: PARKINSON^S DISEASE
     Route: 048
     Dates: start: 200912
  3. RASAGILINE [Suspect]
     Indication: PARKINSON^S DISEASE
     Route: 048
     Dates: start: 2008

REACTIONS (1)
  - Pathological gambling [None]
